FAERS Safety Report 21980925 (Version 1)
Quarter: 2023Q1

REPORT INFORMATION
  Report Type: Report from Study
  Country: KR (occurrence: KR)
  Receive Date: 20230211
  Receipt Date: 20230211
  Transmission Date: 20230417
  Serious: Yes (Hospitalization, Other)
  Sender: FDA-Public Use
  Company Number: KR-CELLTRION INC.-2023KR001950

PATIENT

DRUGS (19)
  1. INFLIXIMAB [Suspect]
     Active Substance: INFLIXIMAB
     Indication: Colitis ulcerative
     Dosage: 120 MG, Q2WEEKS
     Route: 058
     Dates: start: 20221229, end: 20230109
  2. PENTASA [Concomitant]
     Active Substance: MESALAMINE
     Indication: Colitis ulcerative
     Dosage: 500 MILLIGRAM, QD
     Route: 048
     Dates: start: 20230114, end: 20230116
  3. PENTASA [Concomitant]
     Active Substance: MESALAMINE
     Indication: Colitis ulcerative
     Dosage: 7 GRAM, QD
     Route: 048
     Dates: start: 20230114, end: 20230114
  4. PENTASA [Concomitant]
     Active Substance: MESALAMINE
     Dosage: 4 GRAM, QD
     Route: 048
     Dates: start: 20230115, end: 20230115
  5. PENTASA [Concomitant]
     Active Substance: MESALAMINE
     Dosage: 1 GRAM, QD
     Route: 048
     Dates: start: 20230116, end: 20230116
  6. PENTASA [Concomitant]
     Active Substance: MESALAMINE
     Indication: Colitis ulcerative
     Dosage: 6 GRAM, QD
     Route: 048
     Dates: start: 20230117, end: 20230117
  7. PENTASA [Concomitant]
     Active Substance: MESALAMINE
     Dosage: 4 GRAM, QD
     Route: 048
     Dates: start: 20230118
  8. AZATHIOPRINE [Concomitant]
     Active Substance: AZATHIOPRINE
     Indication: Colitis ulcerative
     Dosage: 25 MILLIGRAM, QD
     Route: 048
     Dates: start: 20221229, end: 20230115
  9. PREDNISOLONE [Concomitant]
     Active Substance: PREDNISOLONE
     Indication: Colitis ulcerative
     Dosage: 15 MILLIGRAM, QD
     Route: 048
     Dates: start: 20230113, end: 20230115
  10. PREDNISOLONE [Concomitant]
     Active Substance: PREDNISOLONE
     Dosage: 60 MILLIGRAM, QD
     Route: 048
     Dates: start: 20230117, end: 20230117
  11. PREDNISOLONE [Concomitant]
     Active Substance: PREDNISOLONE
     Dosage: 30 MILLIGRAM, QD
     Route: 048
     Dates: start: 20230118
  12. PREDNISOLONE [Concomitant]
     Active Substance: PREDNISOLONE
     Dosage: 25 MG
     Route: 048
     Dates: start: 20230125
  13. CEFTRIAXONE [Concomitant]
     Active Substance: CEFTRIAXONE
     Indication: Colitis ulcerative
     Dosage: 2 GRAM, QD
     Route: 042
     Dates: start: 20230115, end: 20230119
  14. XELJANZ [Concomitant]
     Active Substance: TOFACITINIB CITRATE
     Indication: Colitis ulcerative
     Dosage: 10 MILLIGRAM, BID
     Route: 048
     Dates: start: 20230117
  15. SK ALBUMIN [Concomitant]
     Indication: Hypoalbuminaemia
     Dosage: 100 ML, QD
     Route: 042
     Dates: start: 20230115
  16. AVELOX [Concomitant]
     Active Substance: MOXIFLOXACIN HYDROCHLORIDE
     Indication: Colitis ulcerative
     Dosage: 400 MILLIGRAM, QD
     Route: 042
     Dates: start: 20230119
  17. AVELOX [Concomitant]
     Active Substance: MOXIFLOXACIN HYDROCHLORIDE
     Dosage: 400 MG, QD
     Route: 042
     Dates: start: 20230102, end: 20230103
  18. FERROUS SULFATE [Concomitant]
     Active Substance: FERROUS SULFATE
     Indication: Anaemia
     Dosage: 256 MILLIGRAM, BID
     Route: 048
     Dates: start: 20221117
  19. TRAMADOL HYDROCHLORIDE [Concomitant]
     Active Substance: TRAMADOL HYDROCHLORIDE
     Indication: Colitis ulcerative
     Dosage: 50 MG, QD
     Route: 042
     Dates: start: 20230102, end: 20230102

REACTIONS (3)
  - Colitis ulcerative [Recovering/Resolving]
  - Haematochezia [Recovered/Resolved]
  - Therapy non-responder [Unknown]

NARRATIVE: CASE EVENT DATE: 20230113
